FAERS Safety Report 18536430 (Version 1)
Quarter: 2020Q4

REPORT INFORMATION
  Report Type: Spontaneous
  Country: BG (occurrence: BG)
  Receive Date: 20201123
  Receipt Date: 20201123
  Transmission Date: 20210114
  Serious: Yes (Other)
  Sender: FDA-Public Use
  Company Number: NVSC2020BG312203

PATIENT
  Age: 60 Year
  Sex: Male

DRUGS (2)
  1. LERCANIDIPINE [Suspect]
     Active Substance: LERCANIDIPINE
     Indication: HYPERTENSION
     Dosage: 10 MG (1-0-0)
     Route: 065
     Dates: start: 201308
  2. HYDROCHLOROTHIAZIDE,VALSARTAN [Suspect]
     Active Substance: HYDROCHLOROTHIAZIDE\VALSARTAN
     Indication: HYPERTENSION
     Dosage: 160MG/12.5MG (1-0-0)
     Route: 065
     Dates: start: 201308

REACTIONS (2)
  - Basal cell carcinoma [Unknown]
  - Dysplastic naevus [Unknown]

NARRATIVE: CASE EVENT DATE: 2015
